FAERS Safety Report 19303968 (Version 2)
Quarter: 2021Q2

REPORT INFORMATION
  Report Type: Report from Study
  Country: MX (occurrence: MX)
  Receive Date: 20210525
  Receipt Date: 20210611
  Transmission Date: 20210717
  Serious: Yes (Hospitalization, Other)
  Sender: FDA-Public Use
  Company Number: NVSC2021MX115716

PATIENT
  Age: 45 Year
  Sex: Female
  Weight: 67 kg

DRUGS (6)
  1. GILENYA [Suspect]
     Active Substance: FINGOLIMOD HYDROCHLORIDE
     Dosage: 1 DF, QD
     Route: 048
     Dates: start: 20210422, end: 20210507
  2. GLATIRAMER ACETATE. [Concomitant]
     Active Substance: GLATIRAMER ACETATE
     Indication: MULTIPLE SCLEROSIS
     Dosage: 1 DF, QD
     Route: 058
     Dates: start: 2016, end: 201910
  3. GILENYA [Suspect]
     Active Substance: FINGOLIMOD HYDROCHLORIDE
     Indication: MULTIPLE SCLEROSIS
     Dosage: 0.5 MG, QD
     Route: 048
  4. INTERFERON BETA NOS [Concomitant]
     Active Substance: INTERFERON BETA
     Indication: MULTIPLE SCLEROSIS
     Dosage: 1 DF, QD
     Route: 058
     Dates: start: 2014, end: 2015
  5. GABAPENTIN. [Concomitant]
     Active Substance: GABAPENTIN
     Indication: MULTIPLE SCLEROSIS
     Dosage: 1 DF, QD
     Route: 048
  6. GILENYA [Suspect]
     Active Substance: FINGOLIMOD HYDROCHLORIDE
     Dosage: 1 DF, QD
     Route: 048
     Dates: start: 20210513, end: 20210526

REACTIONS (8)
  - Abdominal pain [Recovered/Resolved]
  - Headache [Unknown]
  - Optic neuritis [Not Recovered/Not Resolved]
  - Pain [Recovered/Resolved]
  - Vision blurred [Recovered/Resolved]
  - Blindness [Recovered/Resolved]
  - Vomiting [Recovered/Resolved]
  - Multiple sclerosis relapse [Unknown]

NARRATIVE: CASE EVENT DATE: 20210411
